FAERS Safety Report 5545360-3 (Version None)
Quarter: 2007Q4

REPORT INFORMATION
  Report Type: 
  Country: None (occurrence: None)
  Receive Date: 20071211
  Receipt Date: 20071204
  Transmission Date: 20080405
  Serious: Yes (Hospitalization)
  Sender: FDA-Public Use
  Company Number: GB-BRISTOL-MYERS SQUIBB COMPANY-14009906

PATIENT
  Age: 81 Year
  Sex: Male

DRUGS (6)
  1. METFORMIN HCL [Suspect]
     Route: 048
     Dates: end: 20071122
  2. ENALAPRIL [Suspect]
     Route: 048
     Dates: end: 20071122
  3. CARVEDILOL [Concomitant]
     Route: 048
  4. FUROSEMIDE [Concomitant]
     Route: 048
  5. NICORANDIL [Concomitant]
     Route: 048
  6. WARFARIN SODIUM [Concomitant]
     Route: 048

REACTIONS (1)
  - RENAL FAILURE ACUTE [None]
